FAERS Safety Report 6999282-1 (Version None)
Quarter: 2010Q3

REPORT INFORMATION
  Report Type: 
  Country: None (occurrence: None)
  Receive Date: 20100920
  Receipt Date: 20090807
  Transmission Date: 20110219
  Serious: Yes (Other)
  Sender: FDA-Public Use
  Company Number: US-ASTRAZENECA-2009UW21887

PATIENT
  Age: 33 Year
  Sex: Male
  Weight: 86.2 kg

DRUGS (2)
  1. SEROQUEL [Suspect]
     Indication: SCHIZOAFFECTIVE DISORDER
     Route: 048
     Dates: start: 20010101, end: 20070701
  2. DEXEDRINE SR [Concomitant]

REACTIONS (3)
  - ALOPECIA AREATA [None]
  - TARDIVE DYSKINESIA [None]
  - THROMBOCYTOPENIA [None]
